FAERS Safety Report 22090276 (Version 2)
Quarter: 2024Q4

REPORT INFORMATION
  Report Type: Spontaneous
  Country: US (occurrence: US)
  Receive Date: 20230313
  Receipt Date: 20241018
  Transmission Date: 20250114
  Serious: Yes (Other)
  Sender: MYLAN
  Company Number: US-MYLANLABS-2023M1026788

PATIENT
  Age: 80 Year
  Sex: Male

DRUGS (13)
  1. AZITHROMYCIN [Suspect]
     Active Substance: AZITHROMYCIN
     Indication: Babesiosis
     Dosage: 500 MILLIGRAM, QD
     Route: 065
  2. AZITHROMYCIN [Suspect]
     Active Substance: AZITHROMYCIN
     Dosage: 1000 MILLIGRAM, QD
     Route: 065
  3. CLINDAMYCIN [Suspect]
     Active Substance: CLINDAMYCIN
     Indication: Babesiosis
     Dosage: 600 MILLIGRAM, TID (THRICE DAILY)
     Route: 065
  4. CLINDAMYCIN [Suspect]
     Active Substance: CLINDAMYCIN
     Dosage: 300 MILLIGRAM, TID (THRICE DAILY)
     Route: 065
  5. ATOVAQUONE\PROGUANIL [Suspect]
     Active Substance: ATOVAQUONE\PROGUANIL
     Indication: Babesiosis
     Dosage: UNK, QD, ATOVAQUONE/PROGUANIL 1000/400 MG DAILY
     Route: 065
  6. ATOVAQUONE\PROGUANIL [Suspect]
     Active Substance: ATOVAQUONE\PROGUANIL
     Dosage: UNK, QD, ATOVAQUONE/PROGUANIL 500/200 MG DAILY
     Route: 065
  7. QUININE [Suspect]
     Active Substance: QUININE
     Indication: Babesiosis
     Dosage: 648 MILLIGRAM, TID (THRICE DAILY)
     Route: 065
  8. QUININE [Suspect]
     Active Substance: QUININE
     Dosage: UNK (RESUMED)
     Route: 065
  9. ATOVAQUONE [Suspect]
     Active Substance: ATOVAQUONE
     Indication: Babesiosis
     Dosage: 750 MILLIGRAM, BID
     Route: 065
  10. ATOVAQUONE [Suspect]
     Active Substance: ATOVAQUONE
     Dosage: 1250 MILLIGRAM
     Route: 065
  11. TAFENOQUINE [Concomitant]
     Active Substance: TAFENOQUINE
     Indication: Babesiosis
     Dosage: 300 MILLIGRAM, RECEIVED ON DAY 256 OF THE BABESIOSIS DIAGNOSIS
     Route: 065
  12. TAFENOQUINE [Concomitant]
     Active Substance: TAFENOQUINE
     Dosage: 300 MILLIGRAM, QW
     Route: 065
  13. TAFENOQUINE [Concomitant]
     Active Substance: TAFENOQUINE
     Dosage: 150 MILLIGRAM, RECEIVED ON DAY 257 AND 258 OF THE BABESIOSIS DIAGNOSIS.
     Route: 065

REACTIONS (3)
  - Drug resistance [Unknown]
  - Abdominal discomfort [Recovered/Resolved]
  - Nausea [Recovered/Resolved]
